FAERS Safety Report 9800396 (Version 1)
Quarter: 2014Q1

REPORT INFORMATION
  Report Type: Spontaneous
  Country: NL (occurrence: NL)
  Receive Date: 20140107
  Receipt Date: 20140107
  Transmission Date: 20141002
  Serious: Yes (Death)
  Sender: FDA-Public Use
  Company Number: NL-AMGEN-NLDSP2013091732

PATIENT
  Age: 75 Year
  Sex: Male

DRUGS (15)
  1. XGEVA [Suspect]
     Indication: PROPHYLAXIS
     Dosage: UNK UNK, Q4WK
     Route: 058
     Dates: start: 20120104
  2. LACTULOSESTROOP [Concomitant]
     Dosage: 50 %, M/M
  3. FORLAX                             /00754501/ [Concomitant]
     Dosage: 10 G, SACH PDR V DRANK
  4. MICROLAX                           /00285401/ [Concomitant]
     Dosage: 5 ML, UNK
  5. METFORMIN HCL [Concomitant]
     Dosage: 850 MG, UNK
  6. GLIMEPIRIDE ACTAVIS [Concomitant]
     Dosage: 1 MG, UNK
  7. CALCICHEW D3 [Concomitant]
     Dosage: 500 MG/400 IE
  8. ACETYLSALICYLZUUR CARDIO [Concomitant]
     Dosage: 80 MG, UNK
  9. HYDROCOBAMINE [Concomitant]
     Dosage: 500 MUG/ML, AMP 2 ML
  10. HYDROCHLOROTHIAZIDE [Concomitant]
     Dosage: 12.5 MG, UNK
  11. METOPROLOL SANDOZ                  /00376903/ [Concomitant]
     Dosage: 100
  12. ENALAPRILMALEAAT SANDOZ [Concomitant]
     Dosage: 20 MG, UNK
  13. LUCRIN PDS [Concomitant]
     Dosage: 11.25 MG, INJPD+SV
  14. BICALUTAMIDE [Concomitant]
     Dosage: 150 MG, UNK FO
  15. OXYCONTIN [Concomitant]
     Dosage: 10 MG, UNK MVA

REACTIONS (1)
  - Death [Fatal]
